FAERS Safety Report 12877824 (Version 1)
Quarter: 2016Q4

REPORT INFORMATION
  Report Type: Spontaneous
  Country: US (occurrence: US)
  Receive Date: 20161024
  Receipt Date: 20161024
  Transmission Date: 20170207
  Serious: No
  Sender: FDA-Public Use
  Company Number: US-JUBILANT PHARMA LTD-2016US000275

PATIENT

DRUGS (1)
  1. DRAXIMAGE MDP-25 [Suspect]
     Active Substance: TECHNETIUM TC-99M MEDRONATE
     Indication: BONE SCAN
     Dosage: 25 MCI, SINGLE DOSE
     Route: 065
     Dates: start: 20160628, end: 20160628

REACTIONS (3)
  - No adverse event [None]
  - Drug ineffective [Unknown]
  - Product measured potency issue [Unknown]

NARRATIVE: CASE EVENT DATE: 20160628
